FAERS Safety Report 4567484-X (Version None)
Quarter: 2005Q1

REPORT INFORMATION
  Report Type: 
  Country: None (occurrence: None)
  Receive Date: 20050127
  Receipt Date: 20050111
  Transmission Date: 20050727
  Serious: Yes (Other)
  Sender: FDA-Public Use
  Company Number: DSA_25634_2005

PATIENT
  Age: 84 Year
  Sex: Female

DRUGS (4)
  1. HERBESSER ^DELTA^ [Suspect]
     Indication: ATRIAL FIBRILLATION
     Dosage: 90 MG Q DAY PO
     Route: 048
     Dates: start: 20040801
  2. OSTEN [Suspect]
     Dosage: DF PO
     Route: 048
  3. ROCALTROL [Suspect]
     Dosage: DF PO
     Route: 048
  4. NIVADIL [Suspect]
     Dosage: DF PO
     Route: 048

REACTIONS (1)
  - CARDIAC ARREST [None]
